FAERS Safety Report 6367321-7 (Version None)
Quarter: 2009Q3

REPORT INFORMATION
  Report Type: 
  Country: None (occurrence: None)
  Receive Date: 20090921
  Receipt Date: 20090916
  Transmission Date: 20100115
  Serious: Yes (Death)
  Sender: FDA-Public Use
  Company Number: US-CELGENEUS-163-21880-09051067

PATIENT
  Sex: Male

DRUGS (4)
  1. REVLIMID [Suspect]
     Route: 048
     Dates: start: 20080501, end: 20090101
  2. REVLIMID [Suspect]
     Route: 048
     Dates: start: 20070401, end: 20080201
  3. REVLIMID [Suspect]
     Route: 048
     Dates: start: 20080301, end: 20080301
  4. REVLIMID [Suspect]
     Route: 048
     Dates: start: 20080401, end: 20080401

REACTIONS (1)
  - MULTIPLE MYELOMA [None]
